FAERS Safety Report 12375973 (Version 1)
Quarter: 2016Q2

REPORT INFORMATION
  Report Type: Spontaneous
  Country: US (occurrence: None)
  Receive Date: 20160516
  Receipt Date: 20160516
  Transmission Date: 20160815
  Serious: No
  Sender: FDA-Public Use
  Company Number: None

PATIENT
  Sex: Female

DRUGS (1)
  1. TOUJEO [Suspect]
     Active Substance: INSULIN GLARGINE

REACTIONS (7)
  - Sleep disorder [None]
  - Feeling jittery [None]
  - Nervousness [None]
  - Blood glucose increased [None]
  - Stress [None]
  - Drug dose omission [None]
  - Intentional product use issue [None]
